FAERS Safety Report 25151135 (Version 4)
Quarter: 2025Q4

REPORT INFORMATION
  Report Type: Spontaneous
  Country: US (occurrence: US)
  Receive Date: 20250402
  Receipt Date: 20251124
  Transmission Date: 20260118
  Serious: No
  Sender: SANOFI AVENTIS
  Company Number: US-SA-2025SA093829

PATIENT
  Age: 80 Year
  Sex: Female

DRUGS (2)
  1. DUPIXENT [Suspect]
     Active Substance: DUPILUMAB
     Indication: Dermatitis atopic
     Dosage: 300 MG, QOW
     Route: 058
     Dates: start: 20250226
  2. ADBRY [Suspect]
     Active Substance: TRALOKINUMAB-LDRM
     Dosage: UNK

REACTIONS (6)
  - Hair texture abnormal [Unknown]
  - Alopecia [Unknown]
  - Injection site erythema [Recovered/Resolved]
  - Therapeutic product effect incomplete [Unknown]
  - Dermatitis atopic [Unknown]
  - Drug ineffective [Unknown]

NARRATIVE: CASE EVENT DATE: 20250101
